FAERS Safety Report 5145397-2 (Version None)
Quarter: 2006Q4

REPORT INFORMATION
  Report Type: 
  Country: None (occurrence: None)
  Receive Date: 20061031
  Receipt Date: 20061019
  Transmission Date: 20070319
  Serious: Yes (Other)
  Sender: FDA-Public Use
  Company Number: 2006128506

PATIENT
  Age: 18 Year
  Sex: Female

DRUGS (2)
  1. BENADRYL [Suspect]
     Indication: HYPERSENSITIVITY
     Dosage: ORAL
     Route: 048
     Dates: start: 20061001
  2. DIMETAPP   (BROMPHENIRAMINE MALEATE, PHENYLEPHRINE HYDROCHLORIDE, PHEN [Suspect]
     Indication: HYPERSENSITIVITY
     Dates: start: 20061001

REACTIONS (2)
  - DEHYDRATION [None]
  - HEART RATE INCREASED [None]
